FAERS Safety Report 6565218-0 (Version None)
Quarter: 2010Q1

REPORT INFORMATION
  Report Type: 
  Country: None (occurrence: None)
  Receive Date: 20100201
  Receipt Date: 20100125
  Transmission Date: 20100710
  Serious: Yes (Death)
  Sender: FDA-Public Use
  Company Number: B0630148A

PATIENT
  Age: 56 Year
  Sex: Male

DRUGS (1)
  1. ARIXTRA [Suspect]
     Indication: MYOCARDIAL INFARCTION
     Route: 065
     Dates: start: 20090101, end: 20090101

REACTIONS (1)
  - INFARCTION [None]
